FAERS Safety Report 14534676 (Version 2)
Quarter: 2018Q1

REPORT INFORMATION
  Report Type: Spontaneous
  Country: US (occurrence: US)
  Receive Date: 20180215
  Receipt Date: 20180301
  Transmission Date: 20180509
  Serious: No
  Sender: FDA-Public Use
  Company Number: US-MERZ NORTH AMERICA, INC.-18MRZ-00070

PATIENT
  Age: 36 Year
  Sex: Female
  Weight: 71.73 kg

DRUGS (1)
  1. ASCLERA [Suspect]
     Active Substance: POLIDOCANOL
     Indication: SPIDER VEIN
     Dosage: 1.0 ML
     Route: 042
     Dates: start: 20180210, end: 20180210

REACTIONS (2)
  - Injection site urticaria [Recovered/Resolved]
  - Injection site irritation [Recovered/Resolved]

NARRATIVE: CASE EVENT DATE: 20180210
